FAERS Safety Report 5947216-0 (Version None)
Quarter: 2008Q4

REPORT INFORMATION
  Report Type: 
  Country: None (occurrence: None)
  Receive Date: 20081110
  Receipt Date: 20081028
  Transmission Date: 20090506
  Serious: Yes (Other)
  Sender: FDA-Public Use
  Company Number: US-ABBOTT-08P-163-0483753-00

PATIENT
  Sex: Female

DRUGS (2)
  1. HUMIRA [Suspect]
     Indication: PSORIASIS
     Route: 058
     Dates: start: 20070101, end: 20080301
  2. HUMIRA [Suspect]
     Route: 058
     Dates: start: 20080501

REACTIONS (3)
  - CATARACT [None]
  - MACULAR HOLE [None]
  - VISION BLURRED [None]
